FAERS Safety Report 5909920-X (Version None)
Quarter: 2008Q4

REPORT INFORMATION
  Report Type: 
  Country: None (occurrence: None)
  Receive Date: 20081006
  Receipt Date: 20081006
  Transmission Date: 20090506
  Serious: Yes (Other)
  Sender: FDA-Public Use
  Company Number: None

PATIENT
  Age: 42 Year
  Sex: Female
  Weight: 62 kg

DRUGS (1)
  1. CHLORAPREP [Suspect]

REACTIONS (4)
  - BLISTER [None]
  - BREAST DISCOLOURATION [None]
  - DEVICE FAILURE [None]
  - ERYTHEMA [None]
